FAERS Safety Report 8845091 (Version 2)
Quarter: 2012Q4

REPORT INFORMATION
  Report Type: 
  Country: US (occurrence: US)
  Receive Date: 20121017
  Receipt Date: 20121024
  Transmission Date: 20130627
  Serious: Yes (Death, Life-Threatening, Other)
  Sender: FDA-Public Use
  Company Number: US-ASTELLAS-2012US010192

PATIENT
  Age: 70 Year
  Sex: Male
  Weight: 125 kg

DRUGS (1)
  1. LEXISCAN [Suspect]
     Indication: SCAN MYOCARDIAL PERFUSION
     Dosage: 0.4 mg, Total Dose
     Route: 042
     Dates: start: 20121003, end: 20121003

REACTIONS (5)
  - Anaphylactic reaction [Fatal]
  - Respiratory arrest [Unknown]
  - Myocardial infarction [Unknown]
  - Cardiac arrest [Unknown]
  - Ventricular tachycardia [Unknown]
